FAERS Safety Report 13205203 (Version 1)
Quarter: 2017Q1

REPORT INFORMATION
  Report Type: Spontaneous
  Country: US (occurrence: US)
  Receive Date: 20170208
  Receipt Date: 20170208
  Transmission Date: 20170428
  Serious: No
  Sender: FDA-Public Use
  Company Number: US-AMGEN-USASP2016119012

PATIENT
  Sex: Male

DRUGS (3)
  1. NEULASTA [Suspect]
     Active Substance: PEGFILGRASTIM
     Indication: PRODUCT USED FOR UNKNOWN INDICATION
     Dosage: UNK UNK, UNK
     Route: 065
  2. TAXOTERE [Concomitant]
     Active Substance: DOCETAXEL
     Dosage: 100 MG, UNK
  3. TAXOTERE [Concomitant]
     Active Substance: DOCETAXEL
     Dosage: 540 MG, UNK

REACTIONS (3)
  - Pain [Recovering/Resolving]
  - Influenza [Unknown]
  - Feeling abnormal [Unknown]
